FAERS Safety Report 9431359 (Version 2)
Quarter: 2013Q4

REPORT INFORMATION
  Report Type: Spontaneous
  Country: US (occurrence: US)
  Receive Date: 20130730
  Receipt Date: 20131003
  Transmission Date: 20140711
  Serious: No
  Sender: FDA-Public Use
  Company Number: US-009507513-1307USA015040

PATIENT
  Age: 24 Year
  Sex: Female
  Weight: 74.38 kg

DRUGS (5)
  1. NEXPLANON [Suspect]
     Indication: CONTRACEPTION
     Dosage: 1 ROD
     Dates: start: 20130404, end: 20130916
  2. NEXPLANON [Suspect]
     Indication: MENSTRUAL DISORDER
     Dosage: UNK
  3. MELOXICAM [Concomitant]
  4. OMEPRAZOLE [Concomitant]
  5. IMPLANON [Concomitant]

REACTIONS (7)
  - Implant site pain [Recovered/Resolved]
  - Pain in extremity [Recovered/Resolved]
  - Implant site irritation [Recovered/Resolved]
  - Application site discomfort [Unknown]
  - Incorrect route of drug administration [Recovered/Resolved]
  - Device deployment issue [Recovered/Resolved]
  - Device dislocation [Recovered/Resolved]
